FAERS Safety Report 16233205 (Version 2)
Quarter: 2019Q3

REPORT INFORMATION
  Report Type: Spontaneous
  Country: US (occurrence: US)
  Receive Date: 20190424
  Receipt Date: 20190718
  Transmission Date: 20191004
  Serious: No
  Sender: FDA-Public Use
  Company Number: US-PFIZER INC-2019169570

PATIENT
  Age: 68 Year
  Sex: Female
  Weight: 63.5 kg

DRUGS (2)
  1. METHYLPREDNISOLONE. [Suspect]
     Active Substance: METHYLPREDNISOLONE
     Indication: PAIN MANAGEMENT
     Dosage: UNK (6 PILLS AND WORKS DOWN TO 1 PILL)
     Dates: start: 201901
  2. METHYLPREDNISOLONE. [Suspect]
     Active Substance: METHYLPREDNISOLONE
     Indication: EAR INFECTION
     Dosage: UNK
     Dates: start: 201904

REACTIONS (4)
  - Migraine [Unknown]
  - Off label use [Unknown]
  - Insomnia [Unknown]
  - Product use in unapproved indication [Unknown]

NARRATIVE: CASE EVENT DATE: 2019
